FAERS Safety Report 16522418 (Version 3)
Quarter: 2019Q4

REPORT INFORMATION
  Report Type: Spontaneous
  Country: US (occurrence: US)
  Receive Date: 20190703
  Receipt Date: 20191004
  Transmission Date: 20200122
  Serious: No
  Sender: FDA-Public Use
  Company Number: US-PFIZER INC-2019272416

PATIENT
  Age: 65 Year
  Sex: Female

DRUGS (7)
  1. SULFAMETHOXAZOLE [Suspect]
     Active Substance: SULFAMETHOXAZOLE
     Indication: DYSPNOEA
     Dosage: UNK
  2. WYGESIC [Suspect]
     Active Substance: ACETAMINOPHEN\PROPOXYPHENE HYDROCHLORIDE
     Indication: KNEE OPERATION
  3. MORPHINE SULFATE. [Suspect]
     Active Substance: MORPHINE SULFATE
     Dosage: UNK
  4. WYGESIC [Suspect]
     Active Substance: ACETAMINOPHEN\PROPOXYPHENE HYDROCHLORIDE
     Indication: RASH
     Dosage: UNK
  5. THIOPENTAL SODIUM. [Suspect]
     Active Substance: THIOPENTAL SODIUM
     Indication: RASH
     Dosage: UNK
  6. CODEINE [Suspect]
     Active Substance: CODEINE
     Indication: KNEE OPERATION
     Dosage: UNK
  7. THIOPENTAL [Suspect]
     Active Substance: THIOPENTAL
     Dosage: UNK

REACTIONS (1)
  - Drug hypersensitivity [Unknown]
